FAERS Safety Report 23653580 (Version 1)
Quarter: 2024Q1

REPORT INFORMATION
  Report Type: Spontaneous
  Country: US (occurrence: US)
  Receive Date: 20240320
  Receipt Date: 20240320
  Transmission Date: 20240410
  Serious: Yes (Other)
  Sender: FDA-Public Use
  Company Number: US-OPELLA-2024OHG008404

PATIENT
  Age: 53 Year
  Sex: Male

DRUGS (13)
  1. TALC [Suspect]
     Active Substance: TALC
     Indication: Product used for unknown indication
  2. ZOCOR [Concomitant]
     Active Substance: SIMVASTATIN
     Indication: Product used for unknown indication
     Dosage: 1 TABLET EVERY EVENING ORALLY ONCE A DAY
  3. ZANAFLEX [Concomitant]
     Active Substance: TIZANIDINE HYDROCHLORIDE
     Indication: Product used for unknown indication
     Dosage: TAKE 1 TABLET BY MOUTH THREE TIMES A DAY AS NEEDED
     Route: 048
  4. CELEBREX [Concomitant]
     Active Substance: CELECOXIB
     Indication: Product used for unknown indication
     Dosage: TAKE 1 CAPSULE BY MOUTH EVERY EVENING
     Route: 048
  5. RESTORIL [Concomitant]
     Active Substance: TEMAZEPAM
     Indication: Sleep disorder
     Dosage: TAKE 1 CAPSULE BY MOUTH NIGHTLY AS NEEDED FOR SLEEP
     Route: 048
  6. BACTRIM DS;SEPTRA DS [Concomitant]
     Indication: Product used for unknown indication
     Dosage: 800-160 MG PER TABLET, TAKE 1 TABLET BY MOUTH 2 TIMES DAILY FOR 7 DAYS
     Route: 048
  7. TYLENOL [Concomitant]
     Active Substance: ACETAMINOPHEN
     Indication: Product used for unknown indication
     Dosage: TAKE 2 TABLETS BY MOUTH 3 TIMES DAILY
     Route: 048
  8. NEURONTIN [Concomitant]
     Active Substance: GABAPENTIN
     Indication: Product used for unknown indication
     Dosage: TAKE 1 CAPSULE BY MOUTH NIGHTLY FOR 30 DAYS.
     Route: 048
  9. IRON 325 [Concomitant]
     Indication: Product used for unknown indication
     Dosage: TAKE 1 TABLET BY MOUTH DAILY (WITH BREAKFAST) MD ADVISED
     Route: 048
  10. VITAMIN D3 [Concomitant]
     Active Substance: CHOLECALCIFEROL
     Indication: Product used for unknown indication
     Dosage: TAKE 1 TABLET BY MOUTH DAILY
     Route: 048
  11. DESYREL [Concomitant]
     Active Substance: TRAZODONE HYDROCHLORIDE
     Indication: Product used for unknown indication
     Dosage: 2 TABLET ORALLY ONCE DAILY AT BEDTIME FOR 90 DAYS (PATIENT TAKING DIFFERENTLY: TAKE 1 TABLET BY MOUT
     Route: 048
  12. PROVENTIL [Concomitant]
     Active Substance: ALBUTEROL
     Indication: Dyspnoea
     Dosage: INHALE 2 PUFFS INTO THE ?LUNGS EVERY 4 HOURS AS NEEDED FOR WHEEZING OR SHORTNESS OF BREATH
     Route: 055
  13. ASPIRIN [Concomitant]
     Active Substance: ASPIRIN
     Indication: Product used for unknown indication
     Dosage: TAKE 81 MG BY MOUTH EVERY EVENING
     Route: 048

REACTIONS (10)
  - Pleural mesothelioma malignant [Unknown]
  - Fatigue [Unknown]
  - Asthenia [Recovering/Resolving]
  - Chest pain [Recovering/Resolving]
  - Constipation [Unknown]
  - Diarrhoea [Recovering/Resolving]
  - Nausea [Recovering/Resolving]
  - Vomiting [Recovered/Resolved]
  - Weight decreased [Unknown]
  - Pleural effusion [Unknown]
